FAERS Safety Report 6161519-9 (Version None)
Quarter: 2009Q2

REPORT INFORMATION
  Report Type: 
  Country: None (occurrence: None)
  Receive Date: 20090421
  Receipt Date: 20090413
  Transmission Date: 20091009
  Serious: Yes (Other)
  Sender: FDA-Public Use
  Company Number: US-ELI_LILLY_AND_COMPANY-US200903005387

PATIENT
  Sex: Female

DRUGS (12)
  1. EVISTA [Suspect]
     Dosage: 60 MG, DAILY (1/D)
     Route: 065
  2. FOSAMAX [Concomitant]
     Dosage: UNK, UNKNOWN
     Route: 065
  3. VASOTEC [Concomitant]
     Dosage: UNK, UNKNOWN
     Route: 065
  4. ZOCOR [Concomitant]
     Dosage: UNK, UNKNOWN
     Route: 065
  5. ASPIRIN [Concomitant]
     Dosage: UNK, UNKNOWN
     Route: 065
  6. TOPROL-XL [Concomitant]
     Dosage: UNK, UNKNOWN
     Route: 065
  7. ASCORBIC ACID [Concomitant]
     Dosage: UNK, UNKNOWN
     Route: 065
  8. VITAMIN D [Concomitant]
     Dosage: UNK, UNKNOWN
     Route: 065
  9. OSCAL [Concomitant]
     Dosage: UNK, UNKNOWN
     Route: 065
  10. CENTRUM [Concomitant]
     Dosage: UNK, UNKNOWN
     Route: 065
  11. FOLIC ACID [Concomitant]
     Dosage: UNK, UNKNOWN
     Route: 065
  12. MULTIVITAMIN [Concomitant]
     Dosage: UNK, UNKNOWN
     Route: 065

REACTIONS (7)
  - ATRIOVENTRICULAR BLOCK [None]
  - BLOOD CHOLESTEROL INCREASED [None]
  - EYE DISORDER [None]
  - FALL [None]
  - HYPERTENSION [None]
  - POOR QUALITY SLEEP [None]
  - WRIST FRACTURE [None]
